FAERS Safety Report 7204503-6 (Version None)
Quarter: 2010Q4

REPORT INFORMATION
  Report Type: 
  Country: None (occurrence: None)
  Receive Date: 20101220
  Receipt Date: 20101215
  Transmission Date: 20110411
  Serious: Yes (Other)
  Sender: FDA-Public Use
  Company Number: GRT-2010-15822

PATIENT
  Age: 77 Year
  Sex: Female

DRUGS (4)
  1. LIDODERM [Suspect]
     Dosage: 1 PATCH
     Dates: start: 20100905
  2. INSULIN GLARGINE [Concomitant]
  3. GLICLAZIDE [Concomitant]
  4. BISOPROLOL [Concomitant]

REACTIONS (4)
  - BODY TEMPERATURE INCREASED [None]
  - FLUSHING [None]
  - MALAISE [None]
  - VASODILATATION [None]
